FAERS Safety Report 22207931 (Version 1)
Quarter: 2023Q2

REPORT INFORMATION
  Report Type: Spontaneous
  Country: US (occurrence: None)
  Receive Date: 20230412
  Receipt Date: 20230412
  Transmission Date: 20230721
  Serious: Yes (Other)
  Sender: FDA-Public Use
  Company Number: None

PATIENT
  Age: 33 Year
  Sex: Female
  Weight: 92.99 kg

DRUGS (3)
  1. CELEXA [Suspect]
     Active Substance: CITALOPRAM HYDROBROMIDE
  2. BUPROPION [Suspect]
     Active Substance: BUPROPION
  3. ORTHO TRI CYCLEN [Suspect]
     Active Substance: ETHINYL ESTRADIOL\NORGESTIMATE

REACTIONS (21)
  - Perinatal depression [None]
  - Depression [None]
  - Anxiety [None]
  - Lactation disorder [None]
  - Hot flush [None]
  - Loss of libido [None]
  - Night sweats [None]
  - Suicidal ideation [None]
  - Homicidal ideation [None]
  - Premature menopause [None]
  - Sleep disorder [None]
  - Dyspnoea [None]
  - Fatigue [None]
  - Mood swings [None]
  - Dry skin [None]
  - Brain fog [None]
  - Amnesia [None]
  - Disturbance in attention [None]
  - Arthralgia [None]
  - Fungal infection [None]
  - Breast pain [None]

NARRATIVE: CASE EVENT DATE: 20210503
